FAERS Safety Report 6209879-4 (Version None)
Quarter: 2009Q2

REPORT INFORMATION
  Report Type: 
  Country: None (occurrence: None)
  Receive Date: 20090601
  Receipt Date: 20090529
  Transmission Date: 20091009
  Serious: Yes (Death, Hospitalization, Other)
  Sender: FDA-Public Use
  Company Number: JP-ASTRAZENECA-2009AP02582

PATIENT
  Age: 3625 Day
  Sex: Female
  Weight: 19.7 kg

DRUGS (106)
  1. FOSCAVIR [Suspect]
     Indication: CYTOMEGALOVIRUS INFECTION
     Route: 041
     Dates: start: 20080415, end: 20080422
  2. AMBISOME [Suspect]
     Indication: SYSTEMIC MYCOSIS
     Route: 041
     Dates: start: 20080409, end: 20080422
  3. AMBISOME [Suspect]
     Indication: PYELONEPHRITIS FUNGAL
     Route: 041
     Dates: start: 20080409, end: 20080422
  4. AMBISOME [Suspect]
     Route: 041
     Dates: start: 20080423, end: 20080425
  5. AMBISOME [Suspect]
     Route: 041
     Dates: start: 20080423, end: 20080425
  6. CIDOFOVIR [Suspect]
     Dates: start: 20080423
  7. CIDOFOVIR [Suspect]
     Dates: start: 20080506
  8. NEUTROGIN [Suspect]
     Indication: NEUTROPENIA
     Route: 041
     Dates: start: 20080415, end: 20080426
  9. NEUTROGIN [Suspect]
     Route: 041
     Dates: start: 20080427, end: 20080430
  10. NEUTROGIN [Suspect]
     Route: 041
  11. TARGOCID [Suspect]
     Indication: INFECTION
     Route: 041
     Dates: start: 20080420, end: 20080425
  12. PROGRAF [Suspect]
     Indication: PROPHYLAXIS AGAINST GRAFT VERSUS HOST DISEASE
     Route: 041
     Dates: end: 20080427
  13. POTASSIUM CHLORIDE [Concomitant]
     Indication: HYPOKALAEMIA
  14. SOLU-MEDROL [Concomitant]
     Indication: PROPHYLAXIS AGAINST GRAFT VERSUS HOST DISEASE
     Route: 042
     Dates: end: 20080504
  15. ALPROSTADIL [Concomitant]
     Indication: HEPATIC VEIN OCCLUSION
     Route: 041
     Dates: end: 20080520
  16. ALPROSTADIL [Concomitant]
     Indication: PROPHYLAXIS
     Route: 041
     Dates: end: 20080520
  17. PERDIPINE [Concomitant]
     Indication: HYPERTENSION
     Route: 041
     Dates: end: 20080426
  18. PERDIPINE [Concomitant]
     Route: 041
     Dates: start: 20080427, end: 20080428
  19. PERDIPINE [Concomitant]
     Route: 041
     Dates: start: 20080504, end: 20080510
  20. OMEPRAL [Concomitant]
     Indication: GASTRITIS PROPHYLAXIS
     Route: 042
     Dates: end: 20080515
  21. INOVAN [Concomitant]
     Indication: DIURETIC THERAPY
     Route: 042
     Dates: end: 20080422
  22. INOVAN [Concomitant]
     Route: 042
     Dates: start: 20080423, end: 20080426
  23. FIRSTCIN [Concomitant]
     Indication: INFECTION
     Route: 042
     Dates: end: 20080417
  24. FIRSTCIN [Concomitant]
     Route: 042
     Dates: start: 20080424, end: 20080427
  25. FULCALIQ 2 [Concomitant]
     Indication: FLUID REPLACEMENT
     Route: 042
     Dates: end: 20080425
  26. ELEMENMIC [Concomitant]
     Indication: MINERAL SUPPLEMENTATION
     Route: 041
     Dates: end: 20080425
  27. ELEMENMIC [Concomitant]
     Route: 041
     Dates: start: 20080426, end: 20080428
  28. NOVO HEPARIN [Concomitant]
     Indication: ANTICOAGULANT THERAPY
     Route: 041
     Dates: end: 20080425
  29. NOVO HEPARIN [Concomitant]
     Route: 041
     Dates: start: 20080426, end: 20080520
  30. SODIUM CHLORIDE [Concomitant]
     Indication: HYPONATRAEMIA
     Route: 042
     Dates: end: 20080425
  31. URSO 250 [Concomitant]
     Indication: PROPHYLAXIS
     Route: 048
     Dates: end: 20080425
  32. URSO 250 [Concomitant]
     Indication: HEPATIC FUNCTION ABNORMAL
     Route: 048
     Dates: end: 20080425
  33. BAKTAR [Concomitant]
     Indication: INFECTION PROPHYLAXIS
     Route: 048
     Dates: end: 20080425
  34. AMOBAN [Concomitant]
     Indication: INSOMNIA
     Route: 048
     Dates: end: 20080426
  35. ALBUMIN (HUMAN) [Concomitant]
     Indication: HYPOALBUMINAEMIA
     Route: 042
     Dates: start: 20080410, end: 20080413
  36. ALBUMIN (HUMAN) [Concomitant]
     Route: 042
     Dates: start: 20080416, end: 20080416
  37. ALBUMIN (HUMAN) [Concomitant]
     Route: 042
     Dates: start: 20080421, end: 20080421
  38. ALBUMIN (HUMAN) [Concomitant]
     Route: 042
     Dates: start: 20080424, end: 20080424
  39. ALBUMIN (HUMAN) [Concomitant]
     Route: 042
     Dates: start: 20080426, end: 20080427
  40. ALBUMIN (HUMAN) [Concomitant]
     Route: 042
     Dates: start: 20080503, end: 20080507
  41. ALBUMIN (HUMAN) [Concomitant]
     Route: 042
     Dates: start: 20080509, end: 20080511
  42. ALBUMIN (HUMAN) [Concomitant]
     Route: 042
     Dates: start: 20080513, end: 20080515
  43. ATARAX [Concomitant]
     Indication: VOMITING
     Route: 042
     Dates: start: 20080411, end: 20080412
  44. ATARAX [Concomitant]
     Indication: INSOMNIA
     Route: 042
     Dates: start: 20080411, end: 20080412
  45. ATARAX [Concomitant]
     Indication: SEDATION
     Route: 042
     Dates: start: 20080411, end: 20080412
  46. ATARAX [Concomitant]
     Route: 042
     Dates: start: 20080416, end: 20080418
  47. ATARAX [Concomitant]
     Route: 042
     Dates: start: 20080416, end: 20080418
  48. ATARAX [Concomitant]
     Route: 042
     Dates: start: 20080416, end: 20080418
  49. ATARAX [Concomitant]
     Route: 042
     Dates: start: 20080420, end: 20080424
  50. ATARAX [Concomitant]
     Route: 042
     Dates: start: 20080420, end: 20080424
  51. ATARAX [Concomitant]
     Route: 042
     Dates: start: 20080420, end: 20080424
  52. ATARAX [Concomitant]
     Route: 042
     Dates: start: 20080426, end: 20080426
  53. ATARAX [Concomitant]
     Route: 042
     Dates: start: 20080426, end: 20080426
  54. ATARAX [Concomitant]
     Route: 042
     Dates: start: 20080426, end: 20080426
  55. ATARAX [Concomitant]
     Route: 042
     Dates: start: 20080503, end: 20080503
  56. ATARAX [Concomitant]
     Route: 042
     Dates: start: 20080503, end: 20080503
  57. ATARAX [Concomitant]
     Route: 042
     Dates: start: 20080503, end: 20080503
  58. KENKETSU VENOGLOBULIN-IH [Concomitant]
     Indication: THROMBOCYTOPENIA
     Route: 042
     Dates: start: 20080411, end: 20080411
  59. KENKETSU VENOGLOBULIN-IH [Concomitant]
     Route: 042
     Dates: start: 20080418, end: 20080418
  60. KENKETSU VENOGLOBULIN-IH [Concomitant]
     Route: 042
     Dates: start: 20080425, end: 20080425
  61. KENKETSU VENOGLOBULIN-IH [Concomitant]
     Route: 042
     Dates: start: 20080502, end: 20080502
  62. STERICLON W [Concomitant]
     Indication: PROPHYLAXIS URINARY TRACT INFECTION
     Dates: start: 20080414, end: 20080414
  63. NEUART [Concomitant]
     Indication: ANTICOAGULANT THERAPY
     Route: 042
     Dates: start: 20080414, end: 20080414
  64. NEUART [Concomitant]
     Route: 042
     Dates: start: 20080429, end: 20080430
  65. NEUART [Concomitant]
     Route: 042
     Dates: start: 20080512, end: 20080512
  66. ATROPINE SULFATE [Concomitant]
     Indication: URETERAL STENT INSERTION
     Route: 042
     Dates: start: 20080415, end: 20080415
  67. ATROPINE SULFATE [Concomitant]
     Indication: URETERAL STENT REMOVAL
     Route: 042
     Dates: start: 20080415, end: 20080415
  68. DORMICUM [Concomitant]
     Indication: URETERAL STENT INSERTION
     Route: 042
     Dates: start: 20080415, end: 20080415
  69. DORMICUM [Concomitant]
     Indication: URETERAL STENT REMOVAL
     Route: 042
     Dates: start: 20080415, end: 20080415
  70. DORMICUM [Concomitant]
     Indication: SEDATION
     Route: 042
     Dates: start: 20080415, end: 20080415
  71. DORMICUM [Concomitant]
     Route: 042
     Dates: start: 20080428, end: 20080428
  72. DORMICUM [Concomitant]
     Route: 042
     Dates: start: 20080428, end: 20080428
  73. DORMICUM [Concomitant]
     Route: 042
     Dates: start: 20080428, end: 20080428
  74. DORMICUM [Concomitant]
     Route: 042
     Dates: start: 20080504, end: 20080504
  75. DORMICUM [Concomitant]
     Route: 042
     Dates: start: 20080504, end: 20080504
  76. DORMICUM [Concomitant]
     Route: 042
     Dates: start: 20080504, end: 20080504
  77. DORMICUM [Concomitant]
     Route: 042
     Dates: start: 20080505, end: 20080505
  78. DORMICUM [Concomitant]
     Route: 042
     Dates: start: 20080505, end: 20080505
  79. DORMICUM [Concomitant]
     Route: 042
     Dates: start: 20080505, end: 20080505
  80. DORMICUM [Concomitant]
     Route: 042
     Dates: start: 20080508, end: 20080508
  81. DORMICUM [Concomitant]
     Route: 042
     Dates: start: 20080508, end: 20080508
  82. DORMICUM [Concomitant]
     Route: 042
     Dates: start: 20080508, end: 20080508
  83. KETALAR [Concomitant]
     Indication: URETERAL STENT INSERTION
     Route: 042
     Dates: start: 20080415, end: 20080415
  84. KETALAR [Concomitant]
     Indication: URETERAL STENT REMOVAL
     Route: 042
     Dates: start: 20080415, end: 20080415
  85. NEGMIN [Concomitant]
     Indication: URETERAL STENT INSERTION
     Route: 042
     Dates: start: 20080415, end: 20080415
  86. NEGMIN [Concomitant]
     Indication: URETERAL STENT REMOVAL
     Route: 042
     Dates: start: 20080415, end: 20080415
  87. NEGMIN [Concomitant]
     Indication: INFECTION PROPHYLAXIS
     Route: 042
     Dates: start: 20080415, end: 20080415
  88. NEGMIN [Concomitant]
     Route: 042
     Dates: start: 20080422, end: 20080422
  89. NEGMIN [Concomitant]
     Route: 042
     Dates: start: 20080422, end: 20080422
  90. NEGMIN [Concomitant]
     Route: 042
     Dates: start: 20080422, end: 20080422
  91. HYPOETHANOL [Concomitant]
     Indication: URETERAL STENT INSERTION
     Dates: start: 20080415, end: 20080415
  92. HYPOETHANOL [Concomitant]
     Indication: URETERAL STENT REMOVAL
     Dates: start: 20080415, end: 20080415
  93. CARBENIN [Concomitant]
     Indication: INFECTION
     Route: 041
     Dates: start: 20080417, end: 20080423
  94. CARBENIN [Concomitant]
     Route: 041
     Dates: start: 20080515, end: 20080520
  95. LASIX [Concomitant]
     Indication: DIURETIC THERAPY
     Route: 042
     Dates: start: 20080417, end: 20080417
  96. LASIX [Concomitant]
     Route: 042
     Dates: start: 20080418, end: 20080418
  97. LASIX [Concomitant]
     Route: 042
     Dates: start: 20080421, end: 20080421
  98. LASIX [Concomitant]
     Route: 042
     Dates: start: 20080424, end: 20080424
  99. LASIX [Concomitant]
     Route: 042
     Dates: start: 20080425, end: 20080425
  100. LASIX [Concomitant]
     Route: 042
     Dates: start: 20080426, end: 20080426
  101. LASIX [Concomitant]
     Route: 042
     Dates: start: 20080427, end: 20080427
  102. LASIX [Concomitant]
     Route: 042
     Dates: start: 20080428, end: 20080428
  103. LASIX [Concomitant]
     Route: 042
     Dates: start: 20080506, end: 20080506
  104. LASIX [Concomitant]
     Route: 042
     Dates: start: 20080509, end: 20080509
  105. LASIX [Concomitant]
     Route: 042
     Dates: start: 20080512, end: 20080512
  106. ARTIFICIAL TEAR MYTEAR [Concomitant]
     Indication: CONJUNCTIVITIS
     Dates: start: 20080419, end: 20080420

REACTIONS (4)
  - BLOOD BILIRUBIN INCREASED [None]
  - BLOOD POTASSIUM DECREASED [None]
  - RENAL FAILURE [None]
  - RESPIRATORY FAILURE [None]
